FAERS Safety Report 9519249 (Version 1)
Quarter: 2013Q1

REPORT INFORMATION
  Report Type: Spontaneous
  Country: US (occurrence: None)
  Receive Date: 20130305
  Receipt Date: 20130305
  Transmission Date: 20140127
  Serious: Yes (Other)
  Sender: FDA-Public Use
  Company Number: 163-21880-12110397

PATIENT
  Age: 62 Year
  Sex: Female
  Weight: 88.91 kg

DRUGS (13)
  1. REVLIMID (LENALIDOMIDE) (25 MILLIGRAM, CAPSULES) [Suspect]
     Indication: PLASMA CELL MYELOMA
     Dosage: 25 MG, 21 IN 21 D, PO
     Route: 048
     Dates: start: 20120919
  2. PROCARDIA (NIFEDIPINE (UNKNOWN)? [Concomitant]
  3. TOPROL (METOPROLOL SUCCINATE) (UNKNOWN) [Concomitant]
  4. ASA (ACETYLSALICYLIC ACID) (UNKNOWN)? [Concomitant]
  5. CALCIUM (CALCIUM) (UNKNOWN)? [Concomitant]
  6. DEXAMETHASONE (DEXAMETHASONE) (UNKNOWN) [Concomitant]
  7. FISH OIL (FISH OIL) (UNKNOWN) [Concomitant]
  8. LUNESTA (ESZOPICLONE) (UNKNOWN) [Concomitant]
  9. PROBIOTIC (BIFIDOBACTERIUM LACTIS) (UNKNOWN)? [Concomitant]
  10. ULTRACET (ULTRACET) (UNKNOWN) [Concomitant]
  11. VITAMIN B (VITAMIN B) (UNKNOWN) [Concomitant]
  12. VITAMIN C [Concomitant]
  13. VITAMIN E (TOCOPHEROL) (UNKNOWN) [Concomitant]

REACTIONS (3)
  - Hypotension [None]
  - Sinus disorder [None]
  - Insomnia [None]
